FAERS Safety Report 6150815-7 (Version None)
Quarter: 2009Q2

REPORT INFORMATION
  Report Type: 
  Country: None (occurrence: None)
  Receive Date: 20090408
  Receipt Date: 20090320
  Transmission Date: 20091009
  Serious: Yes (Death, Hospitalization)
  Sender: FDA-Public Use
  Company Number: 2009AL001690

PATIENT
  Age: 63 Year
  Sex: Male

DRUGS (23)
  1. DIGOXIN [Suspect]
     Dosage: 0.125MG, DAILY, PO
     Route: 048
  2. LOVENOX [Concomitant]
  3. EFFEXOR [Concomitant]
  4. INSULIN [Concomitant]
  5. ASPIRIN [Concomitant]
  6. COLACE [Concomitant]
  7. PROTONIX [Concomitant]
  8. LASIX [Concomitant]
  9. NEURONTIN [Concomitant]
  10. LISINOPRIL [Concomitant]
  11. ALLOPURINOL [Concomitant]
  12. COREG [Concomitant]
  13. SYNTHROID [Concomitant]
  14. VICODIN [Concomitant]
  15. VANCOMYCIN HCL [Concomitant]
  16. TOPROL-XL [Concomitant]
  17. AMARYL [Concomitant]
  18. COUMADIN [Concomitant]
  19. ZAROXOLYN [Concomitant]
  20. DEMADEX [Concomitant]
  21. ZESTRIL [Concomitant]
  22. ISORDIL [Concomitant]
  23. COLCHICINE [Concomitant]

REACTIONS (20)
  - ACTIVITIES OF DAILY LIVING IMPAIRED [None]
  - BACTERIAL INFECTION [None]
  - BLOOD PRESSURE INCREASED [None]
  - COUGH [None]
  - DIZZINESS [None]
  - DYSPNOEA [None]
  - DYSPNOEA PAROXYSMAL NOCTURNAL [None]
  - ECONOMIC PROBLEM [None]
  - EMOTIONAL DISTRESS [None]
  - ERYTHEMA [None]
  - INSOMNIA [None]
  - OEDEMA PERIPHERAL [None]
  - PAIN [None]
  - PANCYTOPENIA [None]
  - RENAL FAILURE [None]
  - SECRETION DISCHARGE [None]
  - SEPSIS [None]
  - STAPHYLOCOCCAL INFECTION [None]
  - VENTRICULAR TACHYCARDIA [None]
  - WEIGHT INCREASED [None]
